FAERS Safety Report 22962046 (Version 3)
Quarter: 2024Q3

REPORT INFORMATION
  Report Type: Spontaneous
  Country: CN (occurrence: CN)
  Receive Date: 20230920
  Receipt Date: 20240902
  Transmission Date: 20241016
  Serious: Yes (Hospitalization)
  Sender: TEVA
  Company Number: CN-ABBVIE-5394483

PATIENT
  Age: 60 Year
  Sex: Male

DRUGS (5)
  1. ACITRETIN [Suspect]
     Active Substance: ACITRETIN
     Indication: Psoriasis
     Route: 048
  2. ADALIMUMAB [Suspect]
     Active Substance: ADALIMUMAB
     Indication: Psoriasis
     Dosage: DOSAGE TEXT: WEEK 1 40 MG
     Route: 058
  3. ADALIMUMAB [Suspect]
     Active Substance: ADALIMUMAB
     Indication: Psoriasis
     Dosage: DOSAGE TEXT: FIRST INJECTION 80 MG?WEEK 0
     Route: 058
  4. ADALIMUMAB [Suspect]
     Active Substance: ADALIMUMAB
     Indication: Psoriasis
     Dosage: DOSAGE TEXT: EVERY 2 WEEKS THEREAFTER 40 MG
     Route: 058
  5. METHOTREXATE [Suspect]
     Active Substance: METHOTREXATE
     Indication: Psoriasis
     Route: 048

REACTIONS (3)
  - Oedema peripheral [Recovered/Resolved]
  - Therapeutic product effect incomplete [Unknown]
  - Psoriasis [Unknown]
